FAERS Safety Report 12876011 (Version 1)
Quarter: 2016Q4

REPORT INFORMATION
  Report Type: Spontaneous
  Country: US (occurrence: US)
  Receive Date: 20161020
  Receipt Date: 20161020
  Transmission Date: 20170207
  Serious: No
  Sender: FDA-Public Use
  Company Number: None

PATIENT
  Age: 30 Year
  Sex: Female

DRUGS (1)
  1. HUMIRA [Suspect]
     Active Substance: ADALIMUMAB
     Indication: PSORIATIC ARTHROPATHY
     Dosage: 40 MG (1 PEN) EVERY OTHER WEEK SUBCUTANEOUSLY
     Route: 058
     Dates: start: 20160720

REACTIONS (5)
  - Photophobia [None]
  - Rhinorrhoea [None]
  - Stress [None]
  - Multiple allergies [None]
  - Headache [None]

NARRATIVE: CASE EVENT DATE: 20160928
